FAERS Safety Report 9112462 (Version 1)
Quarter: 2013Q1

REPORT INFORMATION
  Report Type: Report from Study
  Country: CA (occurrence: CA)
  Receive Date: 20130211
  Receipt Date: 20130211
  Transmission Date: 20140127
  Serious: Yes (Other)
  Sender: FDA-Public Use
  Company Number: CA-JNJFOC-20130202245

PATIENT
  Age: 37 Year
  Sex: Female
  Weight: 88 kg

DRUGS (3)
  1. REMICADE [Suspect]
     Indication: CROHN^S DISEASE
     Route: 042
  2. PENTASA [Concomitant]
     Route: 065
  3. IMMODIUM [Concomitant]
     Route: 065

REACTIONS (3)
  - Accident [Unknown]
  - Haematoma [Unknown]
  - Joint swelling [Unknown]
